FAERS Safety Report 13928942 (Version 1)
Quarter: 2017Q3

REPORT INFORMATION
  Report Type: Spontaneous
  Country: IT (occurrence: IT)
  Receive Date: 20170901
  Receipt Date: 20170901
  Transmission Date: 20171127
  Serious: Yes (Other)
  Sender: FDA-Public Use
  Company Number: IT-BAYER-2017-161721

PATIENT
  Age: 58 Year
  Sex: Male

DRUGS (5)
  1. SOFOSBUVIR [Concomitant]
     Active Substance: SOFOSBUVIR
  2. DACLATASVIR. [Concomitant]
     Active Substance: DACLATASVIR
  3. SORAFENIB (RAF KINASE INHIBITOR) [Suspect]
     Active Substance: SORAFENIB
     Indication: HEPATOCELLULAR CARCINOMA
     Dosage: UNK
     Dates: start: 201308, end: 201502
  4. RIBAVIRIN. [Concomitant]
     Active Substance: RIBAVIRIN
  5. SORAFENIB (RAF KINASE INHIBITOR) [Suspect]
     Active Substance: SORAFENIB
     Indication: HEPATOCELLULAR CARCINOMA
     Dosage: UNK
     Dates: start: 201512

REACTIONS (5)
  - Metastases to lung [None]
  - Drug intolerance [None]
  - Hepatocellular carcinoma [None]
  - Hepatic neoplasm [None]
  - Metastases to heart [None]

NARRATIVE: CASE EVENT DATE: 201502
